FAERS Safety Report 17144230 (Version 1)
Quarter: 2019Q4

REPORT INFORMATION
  Report Type: Report from Study
  Country: None (occurrence: BR)
  Receive Date: 20191211
  Receipt Date: 20191211
  Transmission Date: 20200122
  Serious: Yes (Other)
  Sender: FDA-Public Use
  Company Number: BR-ABBVIE-19K-020-3188554-00

PATIENT
  Sex: Female
  Weight: 71 kg

DRUGS (9)
  1. RALOXIFENE. [Concomitant]
     Active Substance: RALOXIFENE
     Indication: OSTEOPOROSIS
  2. LIPIDIL [Concomitant]
     Active Substance: FENOFIBRATE
     Indication: BLOOD TRIGLYCERIDES INCREASED
  3. LEFLUNOMIDE) [Concomitant]
     Indication: RHEUMATOID ARTHRITIS
  4. ATENOLOL. [Concomitant]
     Active Substance: ATENOLOL
     Indication: HYPERTENSION
  5. ROSUVASTATIN. [Concomitant]
     Active Substance: ROSUVASTATIN
     Indication: BLOOD CHOLESTEROL INCREASED
  6. AAS [Concomitant]
     Active Substance: ASPIRIN
     Indication: CARDIAC DISORDER
  7. HUMIRA [Suspect]
     Active Substance: ADALIMUMAB
     Indication: RHEUMATOID ARTHRITIS
     Route: 058
     Dates: start: 20161006
  8. LEFLUNOMIDE) [Concomitant]
  9. PURAN [Concomitant]
     Active Substance: LEVOTHYROXINE SODIUM
     Indication: THYROID DISORDER

REACTIONS (11)
  - Blood pressure fluctuation [Recovering/Resolving]
  - Wound [Recovered/Resolved]
  - Palpitations [Recovering/Resolving]
  - Hypertension [Recovering/Resolving]
  - Pain [Unknown]
  - Intestinal polyp [Unknown]
  - Weight increased [Not Recovered/Not Resolved]
  - Thyroid disorder [Recovering/Resolving]
  - Gastrointestinal disorder [Unknown]
  - Fatigue [Recovering/Resolving]
  - Pruritus allergic [Recovered/Resolved]

NARRATIVE: CASE EVENT DATE: 2017
